FAERS Safety Report 8623029-6 (Version None)
Quarter: 2012Q3

REPORT INFORMATION
  Report Type: 
  Country: None (occurrence: None)
  Receive Date: 20120827
  Receipt Date: 20120807
  Transmission Date: 20120928
  Serious: Yes (Other)
  Sender: FDA-Public Use
  Company Number: FR-PFIZER INC-2012068028

PATIENT
  Age: 74 Year
  Sex: Male

DRUGS (2)
  1. SUNITINIB MALATE [Suspect]
     Indication: RENAL CANCER METASTATIC
     Dosage: 50 MG, 1X/DAY(PER DAY 4 WEEKS)
     Route: 048
  2. PREVISCAN [Concomitant]
     Indication: VENA CAVA THROMBOSIS

REACTIONS (3)
  - ANAEMIA [None]
  - HAEMATEMESIS [None]
  - OESOPHAGITIS ULCERATIVE [None]
